FAERS Safety Report 6888115-X (Version None)
Quarter: 2010Q3

REPORT INFORMATION
  Report Type: 
  Country: None (occurrence: None)
  Receive Date: 20100723
  Receipt Date: 20100713
  Transmission Date: 20110219
  Serious: Yes (Life-Threatening, Hospitalization)
  Sender: FDA-Public Use
  Company Number: GER/GER/10/0014252

PATIENT
  Age: 68 Year
  Sex: Male

DRUGS (6)
  1. CLOPIDEGREL [Suspect]
     Indication: VERTEBRAL ARTERY STENOSIS
  2. ESOMEPRAZOLE MAGNESIUM [Suspect]
     Indication: VERTEBRAL ARTERY STENOSIS
  3. TIROFIBAN (TIROFIBAN) [Concomitant]
  4. ASPIRIN [Concomitant]
  5. ENOXAPARIN SODIUM [Concomitant]
  6. HEPARIN [Concomitant]

REACTIONS (9)
  - BRAIN STEM INFARCTION [None]
  - GAZE PALSY [None]
  - NERVOUS SYSTEM DISORDER [None]
  - QUADRIPARESIS [None]
  - RENAL FAILURE [None]
  - RESPIRATORY FAILURE [None]
  - SEPSIS [None]
  - THERAPEUTIC RESPONSE DECREASED [None]
  - THROMBOSIS IN DEVICE [None]
